FAERS Safety Report 6326292-X (Version None)
Quarter: 2009Q3

REPORT INFORMATION
  Report Type: 
  Country: None (occurrence: None)
  Receive Date: 20090821
  Receipt Date: 20090810
  Transmission Date: 20100115
  Serious: Yes (Other)
  Sender: FDA-Public Use
  Company Number: 8050192

PATIENT
  Sex: Male

DRUGS (1)
  1. KEPPRA [Suspect]

REACTIONS (3)
  - DRUG EXPOSURE VIA BREAST MILK [None]
  - MATERNAL DRUGS AFFECTING FOETUS [None]
  - POST PROCEDURAL HAEMORRHAGE [None]
